FAERS Safety Report 10312181 (Version 1)
Quarter: 2014Q3

REPORT INFORMATION
  Report Type: Spontaneous
  Country: US (occurrence: US)
  Receive Date: 20140718
  Receipt Date: 20140718
  Transmission Date: 20150326
  Serious: Yes (Other)
  Sender: FDA-Public Use
  Company Number: PHHY2014US085823

PATIENT
  Age: 34 Year
  Sex: Female

DRUGS (10)
  1. HYDRALAZINE [Suspect]
     Active Substance: HYDRALAZINE HYDROCHLORIDE
  2. CALCIUM [Suspect]
     Active Substance: CALCIUM
  3. METFORMIN [Suspect]
     Active Substance: METFORMIN HYDROCHLORIDE
  4. AMLODIPINE [Suspect]
     Active Substance: AMLODIPINE BESYLATE
  5. FOLIC ACID. [Suspect]
     Active Substance: FOLIC ACID
  6. FUROSEMIDE. [Suspect]
     Active Substance: FUROSEMIDE
  7. PRENATAL VITAMINS [Suspect]
     Active Substance: VITAMINS
  8. METOPROLOL [Suspect]
     Active Substance: METOPROLOL
  9. BETAMETHASONE [Suspect]
     Active Substance: BETAMETHASONE
  10. INSULIN [Suspect]
     Active Substance: INSULIN NOS

REACTIONS (4)
  - Premature delivery [Unknown]
  - Maternal exposure before pregnancy [Unknown]
  - Condition aggravated [Unknown]
  - Cardiac failure [Unknown]
